FAERS Safety Report 14049697 (Version 2)
Quarter: 2017Q4

REPORT INFORMATION
  Report Type: Spontaneous
  Country: NL (occurrence: NL)
  Receive Date: 20171005
  Receipt Date: 20171124
  Transmission Date: 20180321
  Serious: Yes (Hospitalization, Other)
  Sender: FDA-Public Use
  Company Number: NL-PFIZER INC-2017424858

PATIENT
  Age: 77 Year
  Sex: Male

DRUGS (17)
  1. ACETYLSALICYLIC ACID [Concomitant]
     Active Substance: ASPIRIN
     Dosage: 80 MG, 1X/DAY
     Route: 048
  2. CIPROFLOXACIN. [Concomitant]
     Active Substance: CIPROFLOXACIN
     Dosage: 500 MG, UNK
     Route: 048
  3. GLIMEPIRIDE. [Concomitant]
     Active Substance: GLIMEPIRIDE
     Dosage: 4 MG, UNK
     Route: 048
  4. OCTREOTID [Concomitant]
     Dosage: 30 MG, UNK
     Route: 058
  5. TESTOSTERONE. [Concomitant]
     Active Substance: TESTOSTERONE
     Dosage: 5 MG, 1X/DAY
  6. SOMAVERT [Suspect]
     Active Substance: PEGVISOMANT
     Indication: ACROMEGALY
     Dosage: 40 MG, 2X/WEEK
     Route: 058
     Dates: start: 20170428
  7. METFORMIN [Concomitant]
     Active Substance: METFORMIN HYDROCHLORIDE
     Dosage: 500 MG, 3X/DAY
     Route: 048
  8. OMEPRAZOL [Concomitant]
     Active Substance: OMEPRAZOLE
     Dosage: 20 MG, 1X/DAY
     Route: 048
  9. AMITRIPTYLIN [Concomitant]
     Active Substance: AMITRIPTYLINE
     Dosage: 10 MG, UNK
     Route: 048
  10. OCTREOTID [Concomitant]
     Dosage: 50 UG/ML, UNK
     Route: 058
  11. TEMAZEPAM. [Concomitant]
     Active Substance: TEMAZEPAM
     Dosage: 20 MG, 1X/DAY
     Route: 048
  12. HYDROCHLOROTHIAZIDE. [Concomitant]
     Active Substance: HYDROCHLOROTHIAZIDE
     Dosage: 12.5 MG, 1X/DAY
     Route: 048
  13. TRAMADOL. [Concomitant]
     Active Substance: TRAMADOL
     Dosage: 100 MG, UNK
     Route: 048
  14. COLECALCIFEROL [Concomitant]
     Active Substance: CHOLECALCIFEROL
     Dosage: 800 IU, 1X/DAY
     Route: 048
  15. FOSINOPRIL [Concomitant]
     Active Substance: FOSINOPRIL
     Dosage: 10 MG, 1X/DAY
     Route: 048
  16. LINAGLIPTIN [Concomitant]
     Active Substance: LINAGLIPTIN
     Dosage: 5 MG, 1X/DAY
     Route: 048
  17. TAMSULOSIN [Concomitant]
     Active Substance: TAMSULOSIN
     Dosage: 0.4 MG, 1X/DAY
     Route: 048

REACTIONS (4)
  - Pancreatitis [Not Recovered/Not Resolved]
  - Incontinence [Unknown]
  - Pneumonia [Unknown]
  - Product use issue [Unknown]

NARRATIVE: CASE EVENT DATE: 20170428
